FAERS Safety Report 18586365 (Version 1)
Quarter: 2020Q4

REPORT INFORMATION
  Report Type: Spontaneous
  Country: GB (occurrence: GB)
  Receive Date: 20201207
  Receipt Date: 20201207
  Transmission Date: 20210114
  Serious: Yes (Death)
  Sender: FDA-Public Use
  Company Number: GB-PFIZER INC-2020475952

PATIENT
  Sex: Male

DRUGS (3)
  1. PULMOZYME [Suspect]
     Active Substance: DORNASE ALFA
     Dosage: 2500 IU, 2X/DAY (0.5 DAY), NEB 2
     Route: 055
  2. TOBRAMYCIN. [Suspect]
     Active Substance: TOBRAMYCIN
     Dosage: 300MG/5ML, 2X/DAY
     Route: 065
  3. CAYSTON [Suspect]
     Active Substance: AZTREONAM
     Dosage: 75 MG, 3X/DAY ;NEB SOL

REACTIONS (1)
  - Death [Fatal]
